FAERS Safety Report 4988586-X (Version None)
Quarter: 2006Q2

REPORT INFORMATION
  Report Type: 
  Country: None (occurrence: None)
  Receive Date: 20060426
  Receipt Date: 20060412
  Transmission Date: 20061013
  Serious: Yes (Hospitalization)
  Sender: FDA-Public Use
  Company Number: 107190ISR

PATIENT
  Age: 40 Year
  Sex: Female

DRUGS (1)
  1. GLATIRAMER ACETATE [Suspect]
     Indication: MULTIPLE SCLEROSIS
     Dosage: 20 MILLIGRAM  SUBCUTANEOUS
     Route: 058
     Dates: start: 20050704, end: 20050725

REACTIONS (3)
  - COLITIS ULCERATIVE [None]
  - CONDITION AGGRAVATED [None]
  - THERAPY NON-RESPONDER [None]
